FAERS Safety Report 9049004 (Version 1)
Quarter: 2013Q1

REPORT INFORMATION
  Report Type: Spontaneous
  Country: US (occurrence: None)
  Receive Date: 20130129
  Receipt Date: 20130129
  Transmission Date: 20140127
  Serious: No
  Sender: FDA-Public Use
  Company Number: None

PATIENT
  Sex: Female

DRUGS (1)
  1. JINTELI [Suspect]
     Indication: VON WILLEBRAND^S DISEASE

REACTIONS (1)
  - Haemorrhage [None]
